FAERS Safety Report 4834829-2 (Version None)
Quarter: 2005Q4

REPORT INFORMATION
  Report Type: 
  Country: None (occurrence: None)
  Receive Date: 20051122
  Receipt Date: 20051114
  Transmission Date: 20060501
  Serious: Yes (Death)
  Sender: FDA-Public Use
  Company Number: JP-JNJFOC-20050404039

PATIENT
  Sex: Male

DRUGS (5)
  1. DUROTEP [Suspect]
     Route: 062
     Dates: start: 20030623, end: 20030821
  2. DUROTEP [Suspect]
     Indication: CANCER PAIN
     Route: 062
     Dates: start: 20030623, end: 20030821
  3. GLUCOSE [Concomitant]
     Dates: start: 20030623, end: 20030821
  4. AZULENE [Concomitant]
     Indication: GASTRIC ULCER
     Route: 048
     Dates: start: 20030625, end: 20030821
  5. LIDOCAINE [Concomitant]
     Route: 048
     Dates: start: 20030625, end: 20030821

REACTIONS (1)
  - LUNG NEOPLASM MALIGNANT [None]
